FAERS Safety Report 8329691-X (Version None)
Quarter: 2012Q2

REPORT INFORMATION
  Report Type: 
  Country: None (occurrence: None)
  Receive Date: 20120502
  Receipt Date: 20120423
  Transmission Date: 20120825
  Serious: Yes (Death, Hospitalization)
  Sender: FDA-Public Use
  Company Number: US-GLAXOSMITHKLINE-A0975782A

PATIENT
  Age: 91 Year
  Sex: Female

DRUGS (2)
  1. BORTEZOMIB [Suspect]
     Indication: MULTIPLE MYELOMA
     Dosage: 2MG SEE DOSAGE TEXT
     Route: 042
     Dates: start: 20110503, end: 20111029
  2. MELPHALAN HYDROCHLORIDE [Suspect]
     Indication: MULTIPLE MYELOMA
     Dosage: 10MG SEE DOSAGE TEXT
     Route: 048
     Dates: start: 20110503, end: 20111029

REACTIONS (5)
  - ILL-DEFINED DISORDER [None]
  - INTERNAL INJURY [None]
  - FAILURE TO THRIVE [None]
  - DEATH [None]
  - DEHYDRATION [None]
